FAERS Safety Report 9494036 (Version 1)
Quarter: 2013Q3

REPORT INFORMATION
  Report Type: Spontaneous
  Country: US (occurrence: None)
  Receive Date: 20130829
  Receipt Date: 20130829
  Transmission Date: 20140515
  Serious: No
  Sender: FDA-Public Use
  Company Number: None

PATIENT
  Age: 50 Year
  Sex: Female

DRUGS (1)
  1. TECFIDERA [Suspect]
     Indication: MULTIPLE SCLEROSIS
     Dosage: 120MG BID X 7D ORAL
     Route: 048
     Dates: start: 20130811

REACTIONS (4)
  - Alopecia [None]
  - Acne [None]
  - Rash [None]
  - Diarrhoea [None]
